FAERS Safety Report 25478582 (Version 4)
Quarter: 2025Q3

REPORT INFORMATION
  Report Type: Report from Study
  Country: US (occurrence: US)
  Receive Date: 20250625
  Receipt Date: 20250716
  Transmission Date: 20251021
  Serious: Yes (Hospitalization)
  Sender: EISAI
  Company Number: US-Eisai-EC-2025-191657

PATIENT
  Age: 66 Year
  Sex: Male
  Weight: 104.1 kg

DRUGS (19)
  1. LENVATINIB [Suspect]
     Active Substance: LENVATINIB
     Indication: Metastatic renal cell carcinoma
     Dates: start: 20250227, end: 20250314
  2. BELZUTIFAN [Suspect]
     Active Substance: BELZUTIFAN
     Indication: Renal cell carcinoma
     Dates: start: 20250128, end: 20250218
  3. PALBOCICLIB [Suspect]
     Active Substance: PALBOCICLIB
     Indication: Renal cell carcinoma
     Dates: start: 20250128, end: 20250203
  4. MELATONIN [Concomitant]
     Active Substance: MELATONIN
     Indication: Sleep disorder therapy
     Dates: start: 20200601
  5. LEVOTHYROXINE SODIUM [Concomitant]
     Active Substance: LEVOTHYROXINE SODIUM
     Indication: Hypothyroidism
     Dates: start: 202306
  6. ERGOCALCIFEROL [Concomitant]
     Active Substance: ERGOCALCIFEROL
     Indication: Chronic kidney disease
     Dates: start: 20200601
  7. APIXABAN [Concomitant]
     Active Substance: APIXABAN
     Indication: Atrial fibrillation
     Dates: start: 202306
  8. OXYCODONE [Concomitant]
     Active Substance: OXYCODONE
     Indication: Pain
     Dates: start: 20250114
  9. HYDROCORTISONE [Concomitant]
     Active Substance: HYDROCORTISONE
     Indication: Adrenal insufficiency
     Dates: start: 202306
  10. FAMOTIDINE [Concomitant]
     Active Substance: FAMOTIDINE
     Indication: Prophylaxis
     Dates: start: 202306
  11. EVEROLIMUS [Concomitant]
     Active Substance: EVEROLIMUS
     Indication: Metastatic renal cell carcinoma
     Dates: start: 20250227, end: 20250314
  12. TESTOSTERONE [Concomitant]
     Active Substance: TESTOSTERONE
     Indication: Adrenal insufficiency
     Dates: start: 202306
  13. LEXAPRO [Concomitant]
     Active Substance: ESCITALOPRAM OXALATE
     Indication: Adjustment disorder
     Dates: start: 20250211
  14. ACETAMINOPHEN [Concomitant]
     Active Substance: ACETAMINOPHEN
     Indication: Pain
     Dates: start: 20250226
  15. HUMAN RED BLOOD CELL [Concomitant]
     Active Substance: HUMAN RED BLOOD CELL
     Indication: Anaemia
     Dates: start: 20250222, end: 20250222
  16. HUMAN RED BLOOD CELL [Concomitant]
     Active Substance: HUMAN RED BLOOD CELL
     Dates: start: 20250226, end: 20250226
  17. HUMAN RED BLOOD CELL [Concomitant]
     Active Substance: HUMAN RED BLOOD CELL
     Dates: start: 20250220, end: 20250220
  18. CYANOCOBALAMIN [Concomitant]
     Active Substance: CYANOCOBALAMIN
     Indication: Anaemia
     Dates: start: 20250226, end: 20250226
  19. CYANOCOBALAMIN [Concomitant]
     Active Substance: CYANOCOBALAMIN
     Dates: start: 20250220, end: 20250220

REACTIONS (1)
  - Jejunal perforation [Recovered/Resolved]

NARRATIVE: CASE EVENT DATE: 20250301
